FAERS Safety Report 4383416-1 (Version None)
Quarter: 2004Q2

REPORT INFORMATION
  Report Type: 
  Country: None (occurrence: None)
  Receive Date: 20040623
  Receipt Date: 20040617
  Transmission Date: 20050107
  Serious: Yes (Hospitalization)
  Sender: FDA-Public Use
  Company Number: CH-ROCHE-371302

PATIENT
  Age: 45 Year
  Sex: Female

DRUGS (4)
  1. XENICAL [Suspect]
     Indication: OBESITY
     Route: 048
     Dates: start: 20040515
  2. LORAZEPAM [Concomitant]
     Route: 048
  3. STILNOX [Concomitant]
     Route: 048
  4. RISPERDAL [Concomitant]
     Route: 048

REACTIONS (1)
  - PULMONARY EMBOLISM [None]
